FAERS Safety Report 11219800 (Version 1)
Quarter: 2015Q2

REPORT INFORMATION
  Report Type: Spontaneous
  Country: IT (occurrence: IT)
  Receive Date: 20150625
  Receipt Date: 20150625
  Transmission Date: 20150821
  Serious: Yes (Other)
  Sender: FDA-Public Use
  Company Number: IT-INCYTE CORPORATION-2015IN002948

PATIENT
  Age: 74 Year
  Sex: Female

DRUGS (1)
  1. INC424 [Suspect]
     Active Substance: RUXOLITINIB
     Indication: MYELOFIBROSIS
     Dosage: UNK
     Route: 065

REACTIONS (2)
  - Squamous cell carcinoma of skin [Unknown]
  - Second primary malignancy [Unknown]
